FAERS Safety Report 9943552 (Version 1)
Quarter: 2014Q1

REPORT INFORMATION
  Report Type: Spontaneous
  Country: PR (occurrence: PR)
  Receive Date: 20140303
  Receipt Date: 20140303
  Transmission Date: 20141002
  Serious: No
  Sender: FDA-Public Use
  Company Number: PR-ABBVIE-13P-131-1048628-00

PATIENT
  Sex: 0

DRUGS (5)
  1. HUMIRA [Suspect]
     Indication: RHEUMATOID ARTHRITIS
     Route: 058
     Dates: end: 20120717
  2. HUMIRA [Suspect]
     Route: 058
     Dates: start: 20121101
  3. SULINDAC [Concomitant]
     Indication: RHEUMATOID ARTHRITIS
     Route: 048
  4. TRAMADOL [Concomitant]
     Route: 048
  5. SYNTHROID [Concomitant]
     Indication: PRODUCT USED FOR UNKNOWN INDICATION
     Route: 048
     Dates: start: 2010

REACTIONS (3)
  - Liver disorder [Unknown]
  - Pyrexia [Unknown]
  - Hepatic enzyme increased [Unknown]
